FAERS Safety Report 15315580 (Version 1)
Quarter: 2018Q4

REPORT INFORMATION
  Report Type: Other
  Country: TR (occurrence: TR)
  Receive Date: 20180824
  Receipt Date: 20180824
  Transmission Date: 20190204
  Serious: Yes (Life-Threatening)
  Sender: FDA-Public Use
  Company Number: TR-LEADING PHARMA, LLC-2054182

PATIENT
  Age: 80 Year
  Sex: Female

DRUGS (1)
  1. FUROSEMIDE TABLETS , 20 MG, 40 MG AND 80 MG [Suspect]
     Active Substance: FUROSEMIDE
     Indication: CARDIAC FAILURE

REACTIONS (1)
  - Electrocardiogram QT prolonged [Recovered/Resolved]
